FAERS Safety Report 4339965-5 (Version None)
Quarter: 2004Q2

REPORT INFORMATION
  Report Type: 
  Country: None (occurrence: None)
  Receive Date: 20040414
  Receipt Date: 20020617
  Transmission Date: 20050107
  Serious: Yes (Hospitalization, Disabling)
  Sender: FDA-Public Use
  Company Number: 2002USA00966

PATIENT
  Age: 11 Month
  Sex: Male
  Weight: 11.4 kg

DRUGS (2)
  1. POLY-HISTINE-D - PHENYLPROPANOLAMINE+PHENYLTOLOXAMINE+PYRILAMINE+PHENI [Suspect]
     Indication: RHINORRHOEA
     Dosage: 0.5 TEASPOON Q12HR - ORAL
     Route: 048
     Dates: start: 19941001, end: 19941001
  2. CEFPODOXIME PROXETIL [Concomitant]

REACTIONS (4)
  - ACTIVITIES OF DAILY LIVING IMPAIRED [None]
  - COORDINATION ABNORMAL [None]
  - DEVELOPMENTAL COORDINATION DISORDER [None]
  - SPEECH DISORDER [None]
